FAERS Safety Report 6869359-X (Version None)
Quarter: 2010Q3

REPORT INFORMATION
  Report Type: 
  Country: None (occurrence: None)
  Receive Date: 20100722
  Receipt Date: 20100722
  Transmission Date: 20110219
  Serious: Yes (Other)
  Sender: FDA-Public Use
  Company Number: None

PATIENT
  Sex: Female
  Weight: 61.8 kg

DRUGS (4)
  1. TYLENOL-500 [Suspect]
     Indication: HEADACHE
     Dosage: 2 GELCAPS TAKEN TWICE PO
     Route: 048
  2. BRIVARACETAM [Concomitant]
  3. LAMOTRIGINE [Concomitant]
  4. NORTRIPTYLINE [Concomitant]

REACTIONS (3)
  - CONDITION AGGRAVATED [None]
  - CONVULSION [None]
  - PRODUCT QUALITY ISSUE [None]
